FAERS Safety Report 5262104-3 (Version None)
Quarter: 2007Q1

REPORT INFORMATION
  Report Type: 
  Country: None (occurrence: None)
  Receive Date: 20070311
  Receipt Date: 20070228
  Transmission Date: 20070707
  Serious: No
  Sender: FDA-Public Use
  Company Number: 2006UW11207

PATIENT
  Sex: Female
  Weight: 100 kg

DRUGS (6)
  1. SEROQUEL [Suspect]
     Route: 048
  2. ABILIFY [Concomitant]
  3. CLOZARIL [Concomitant]
  4. RISPERDAL [Concomitant]
     Dates: start: 19990101
  5. CHLORPROMAZINE [Concomitant]
  6. OLANZAPINE [Concomitant]
     Dates: start: 19950101

REACTIONS (1)
  - DIABETES MELLITUS NON-INSULIN-DEPENDENT [None]
